FAERS Safety Report 6077062-1 (Version None)
Quarter: 2009Q1

REPORT INFORMATION
  Report Type: 
  Country: None (occurrence: None)
  Receive Date: 20090212
  Receipt Date: 20090212
  Transmission Date: 20090719
  Serious: Yes (Hospitalization)
  Sender: FDA-Public Use
  Company Number: None

PATIENT
  Age: 41 Year
  Sex: Male
  Weight: 86.7 kg

DRUGS (3)
  1. BUPROPION HCL [Suspect]
     Indication: DEPRESSION
     Dosage: 600 MG ONCE PO
     Route: 048
     Dates: end: 20090129
  2. BUPROPION HCL [Suspect]
     Indication: PAIN
     Dosage: 600 MG ONCE PO
     Route: 048
     Dates: end: 20090129
  3. TRAMADOL HCL [Suspect]
     Dosage: 100 MG EVERY DAY PO
     Route: 048
     Dates: end: 20090129

REACTIONS (6)
  - ALCOHOL USE [None]
  - CONVULSION [None]
  - FATIGUE [None]
  - INCORRECT DOSE ADMINISTERED [None]
  - LOSS OF CONSCIOUSNESS [None]
  - SOMNOLENCE [None]
